FAERS Safety Report 9779026 (Version 1)
Quarter: 2013Q4

REPORT INFORMATION
  Report Type: Spontaneous
  Country: US (occurrence: US)
  Receive Date: 20131223
  Receipt Date: 20131223
  Transmission Date: 20140711
  Serious: No
  Sender: FDA-Public Use
  Company Number: US-009507513-1310USA015008

PATIENT
  Age: 40 Year
  Sex: Female

DRUGS (5)
  1. SAPHRIS [Suspect]
     Indication: BIPOLAR DISORDER
     Dosage: 5 MG, QD
     Route: 060
     Dates: start: 20130305, end: 20130604
  2. ATIVAN [Concomitant]
  3. ADDERALL TABLETS [Concomitant]
  4. TOPAMAX [Concomitant]
  5. LITHIUM [Concomitant]

REACTIONS (1)
  - Hypoaesthesia [Recovered/Resolved]
